FAERS Safety Report 6840274-0 (Version None)
Quarter: 2010Q3

REPORT INFORMATION
  Report Type: 
  Country: None (occurrence: None)
  Receive Date: 20100714
  Receipt Date: 20100630
  Transmission Date: 20110219
  Serious: Yes (Other)
  Sender: FDA-Public Use
  Company Number: PHHY2010JP42524

PATIENT
  Age: 54 Year
  Sex: Female

DRUGS (2)
  1. AREDIA [Suspect]
     Indication: BREAST CANCER
     Dosage: UNK
     Route: 042
     Dates: start: 20050401, end: 20060801
  2. ZOMETA [Suspect]
     Indication: BREAST CANCER
     Dosage: UNK
     Route: 042
     Dates: start: 20050401, end: 20060801

REACTIONS (11)
  - BONE DISORDER [None]
  - GINGIVAL RECESSION [None]
  - HYPERBARIC OXYGEN THERAPY [None]
  - INFLAMMATION [None]
  - OEDEMA MUCOSAL [None]
  - OSTEONECROSIS OF JAW [None]
  - PAIN IN JAW [None]
  - PRIMARY SEQUESTRUM [None]
  - RESORPTION BONE INCREASED [None]
  - SEQUESTRECTOMY [None]
  - STOMATITIS [None]
